FAERS Safety Report 11235172 (Version 2)
Quarter: 2015Q3

REPORT INFORMATION
  Report Type: Spontaneous
  Country: JP (occurrence: JP)
  Receive Date: 20150702
  Receipt Date: 20150715
  Transmission Date: 20151125
  Serious: Yes (Hospitalization, Other)
  Sender: FDA-Public Use
  Company Number: JP-009507513-1506JPN015466

PATIENT
  Sex: Male

DRUGS (5)
  1. BELSOMRA [Suspect]
     Active Substance: SUVOREXANT
     Dosage: 80 MG, QD
     Route: 048
     Dates: start: 20150626, end: 20150626
  2. TENDARIN [Concomitant]
     Dosage: DAILY DOSE UNKNOWN
     Route: 065
  3. SERENAMIN [Concomitant]
     Dosage: DAILY DOSE UNKNOWN
     Route: 065
  4. RISPERDAL [Concomitant]
     Active Substance: RISPERIDONE
     Dosage: DAILY DOSE UNKNOWN
     Route: 065
  5. SELBEX [Concomitant]
     Active Substance: TEPRENONE
     Dosage: DAILY DOSE UNKNOWN
     Route: 065

REACTIONS (2)
  - Suicide attempt [Recovered/Resolved]
  - Intentional overdose [Unknown]

NARRATIVE: CASE EVENT DATE: 20150626
